FAERS Safety Report 8824303 (Version 2)
Quarter: 2012Q4

REPORT INFORMATION
  Report Type: 
  Country: ES (occurrence: ES)
  Receive Date: 20121004
  Receipt Date: 20121022
  Transmission Date: 20130627
  Serious: Yes (Hospitalization)
  Sender: FDA-Public Use
  Company Number: ES-US-EMD SERONO, INC.-7161097

PATIENT
  Sex: Female

DRUGS (3)
  1. REBIF [Suspect]
     Indication: MULTIPLE SCLEROSIS
     Route: 058
  2. REBIF [Suspect]
     Dosage: titration
     Route: 058
     Dates: start: 20120917, end: 20121016
  3. REBIF [Suspect]
     Route: 058
     Dates: start: 20121016

REACTIONS (1)
  - Psychotic disorder [Recovered/Resolved]
